FAERS Safety Report 10473654 (Version 1)
Quarter: 2014Q3

REPORT INFORMATION
  Report Type: Spontaneous
  Country: US (occurrence: US)
  Receive Date: 20140924
  Receipt Date: 20140924
  Transmission Date: 20150326
  Serious: No
  Sender: FDA-Public Use
  Company Number: US-ELI_LILLY_AND_COMPANY-US201409001151

PATIENT
  Sex: Female

DRUGS (1)
  1. HUMALOG [Suspect]
     Active Substance: INSULIN LISPRO
     Indication: PRODUCT USED FOR UNKNOWN INDICATION
     Route: 065

REACTIONS (8)
  - Vision blurred [Unknown]
  - Headache [Unknown]
  - Skin irritation [Unknown]
  - Dry mouth [Unknown]
  - Abdominal pain upper [Unknown]
  - Nausea [Unknown]
  - Blood glucose increased [Unknown]
  - Thirst [Unknown]
